FAERS Safety Report 5124912-9 (Version None)
Quarter: 2006Q4

REPORT INFORMATION
  Report Type: 
  Country: None (occurrence: None)
  Receive Date: 20061011
  Receipt Date: 20061005
  Transmission Date: 20070319
  Serious: Yes (Other)
  Sender: FDA-Public Use
  Company Number: 2006PK02015

PATIENT
  Age: 51 Year
  Sex: Male

DRUGS (5)
  1. ZESTRIL [Suspect]
     Indication: NEPHRITIC SYNDROME
     Route: 048
  2. ZESTRIL [Interacting]
     Indication: GLOMERULONEPHRITIS MEMBRANOUS
     Route: 048
  3. ZEFFIX [Interacting]
     Indication: HEPATITIS B
     Route: 048
     Dates: start: 20060407, end: 20060430
  4. INDERAL [Interacting]
     Indication: PORTAL HYPERTENSION
     Route: 048
     Dates: start: 20060407, end: 20060430
  5. INDERAL [Interacting]
     Route: 048

REACTIONS (2)
  - COUGH [None]
  - OBSTRUCTIVE AIRWAYS DISORDER [None]
